FAERS Safety Report 23717398 (Version 1)
Quarter: 2024Q2

REPORT INFORMATION
  Report Type: Spontaneous
  Country: FR (occurrence: FR)
  Receive Date: 20240408
  Receipt Date: 20240408
  Transmission Date: 20240716
  Serious: Yes (Death, Other)
  Sender: FDA-Public Use
  Company Number: FR-CHEPLA-2024004218

PATIENT
  Age: 24 Year
  Sex: Male

DRUGS (4)
  1. CLONAZEPAM [Interacting]
     Active Substance: CLONAZEPAM
  2. BUPRENORPHINE [Interacting]
     Active Substance: BUPRENORPHINE
  3. ALCOHOL [Interacting]
     Active Substance: ALCOHOL
  4. LYSERGIDE [Suspect]
     Active Substance: LYSERGIDE

REACTIONS (3)
  - Asphyxia [Fatal]
  - Vomiting [Unknown]
  - Toxicity to various agents [Unknown]
